FAERS Safety Report 16879749 (Version 3)
Quarter: 2019Q4

REPORT INFORMATION
  Report Type: Spontaneous
  Country: US (occurrence: US)
  Receive Date: 20191003
  Receipt Date: 20191127
  Transmission Date: 20200122
  Serious: Yes (Other)
  Sender: FDA-Public Use
  Company Number: US-PFIZER INC-2019389220

PATIENT
  Age: 78 Year
  Sex: Female
  Weight: 58.97 kg

DRUGS (4)
  1. PREMARIN [Suspect]
     Active Substance: ESTROGENS, CONJUGATED
     Indication: VAGINAL DISORDER
     Dosage: 0.5 G, 1X/DAY (DAILY AT BEDTIME )
     Route: 067
  2. PREMARIN [Suspect]
     Active Substance: ESTROGENS, CONJUGATED
     Dosage: 0.5 G, UNK (EVERY THIRD DAY)
     Route: 067
  3. PREMARIN [Suspect]
     Active Substance: ESTROGENS, CONJUGATED
     Dosage: 0.625 MG, UNK
  4. PREMARIN [Suspect]
     Active Substance: ESTROGENS, CONJUGATED
     Dosage: 0.625 MG, UNK
     Route: 067
     Dates: start: 201908, end: 201908

REACTIONS (5)
  - Haemorrhage [Recovering/Resolving]
  - Product use in unapproved indication [Unknown]
  - Disease recurrence [Unknown]
  - Off label use [Unknown]
  - Drug intolerance [Unknown]

NARRATIVE: CASE EVENT DATE: 201908
